FAERS Safety Report 7482851-2 (Version None)
Quarter: 2011Q2

REPORT INFORMATION
  Report Type: 
  Country: None (occurrence: None)
  Receive Date: 20110516
  Receipt Date: 20110511
  Transmission Date: 20111010
  Serious: Yes (Other)
  Sender: FDA-Public Use
  Company Number: US-PFIZER INC-2011101390

PATIENT
  Sex: Male
  Weight: 63.492 kg

DRUGS (1)
  1. CHANTIX [Suspect]
     Indication: SMOKING CESSATION THERAPY
     Dosage: 0.5 MG, 1X/DAY
     Route: 048
     Dates: start: 20110427, end: 20110510

REACTIONS (5)
  - FEELING HOT [None]
  - FACIAL PAIN [None]
  - SCREAMING [None]
  - PRURITUS [None]
  - BURNING SENSATION [None]
